FAERS Safety Report 12273223 (Version 1)
Quarter: 2016Q2

REPORT INFORMATION
  Report Type: Spontaneous
  Country: AU (occurrence: AU)
  Receive Date: 20160415
  Receipt Date: 20160415
  Transmission Date: 20160815
  Serious: Yes (Other)
  Sender: FDA-Public Use
  Company Number: AU-SHIRE-AU201604171

PATIENT
  Sex: Female

DRUGS (2)
  1. VYVANSE [Suspect]
     Active Substance: LISDEXAMFETAMINE DIMESYLATE
     Dosage: 60 MG, 1X/DAY:QD(IN THE MORNING)
     Route: 048
  2. VYVANSE [Suspect]
     Active Substance: LISDEXAMFETAMINE DIMESYLATE
     Indication: PRODUCT USED FOR UNKNOWN INDICATION
     Dosage: 30 MG, 1X/DAY:QD (N THE MORNING)
     Route: 048

REACTIONS (12)
  - Paranoia [Unknown]
  - Dyspnoea [Unknown]
  - Drug effect decreased [Unknown]
  - Tremor [Unknown]
  - Crying [Unknown]
  - Mental disorder [Unknown]
  - Palpitations [Unknown]
  - Chest discomfort [Unknown]
  - Anxiety [Unknown]
  - Aggression [Unknown]
  - Drug ineffective [Unknown]
  - Incorrect dose administered [Unknown]
